FAERS Safety Report 6450644-0 (Version None)
Quarter: 2009Q4

REPORT INFORMATION
  Report Type: 
  Country: None (occurrence: None)
  Receive Date: 20091123
  Receipt Date: 20091116
  Transmission Date: 20100525
  Serious: Yes (Life-Threatening)
  Sender: FDA-Public Use
  Company Number: US-BAYER-200916818BCC

PATIENT
  Sex: Male

DRUGS (1)
  1. BRONKAID DUAL ACTION [Suspect]
     Indication: DRUG USE FOR UNKNOWN INDICATION
     Dosage: CONSUMER WOULD TAKE UP TO 750 MG PER DAY, AS REPORTED BY HIS FATHER
     Route: 048

REACTIONS (1)
  - UNEVALUABLE EVENT [None]
